FAERS Safety Report 22085385 (Version 1)
Quarter: 2023Q1

REPORT INFORMATION
  Report Type: Spontaneous
  Country: US (occurrence: None)
  Receive Date: 20230309
  Receipt Date: 20230309
  Transmission Date: 20230417
  Serious: Yes (Hospitalization)
  Sender: FDA-Public Use
  Company Number: None

PATIENT
  Sex: Female

DRUGS (2)
  1. TOBRAMYCIN INHALATION SOLUTION [Suspect]
     Active Substance: TOBRAMYCIN
     Indication: Cystic fibrosis
     Dosage: 300 MG TWICE DAILY INHALATION
     Route: 048
     Dates: start: 201607
  2. PULMOZYME [Suspect]
     Active Substance: DORNASE ALFA
     Indication: Cystic fibrosis
     Dosage: 2.5 MG DAILY INHALATION
     Route: 055
     Dates: start: 201607

REACTIONS (2)
  - Cystic fibrosis [None]
  - Condition aggravated [None]
